FAERS Safety Report 6565678-5 (Version None)
Quarter: 2010Q1

REPORT INFORMATION
  Report Type: 
  Country: None (occurrence: None)
  Receive Date: 20100126
  Receipt Date: 20100112
  Transmission Date: 20100710
  Serious: Yes (Disabling)
  Sender: FDA-Public Use
  Company Number: 2009-4893

PATIENT
  Age: 44 Year
  Sex: Female
  Weight: 63.5 kg

DRUGS (3)
  1. DYSPORT [Suspect]
     Indication: SKIN WRINKLING
     Dosage: 18 UNITS EACH SIDE (18 UNITS, SINGLE CYCLE), TRANSDERMAL
     Route: 062
     Dates: start: 20091116, end: 20091116
  2. WELLBUTRIN XL [Concomitant]
  3. LATISSE [Concomitant]

REACTIONS (5)
  - DIPLOPIA [None]
  - DRY EYE [None]
  - OCULAR HYPERAEMIA [None]
  - STRABISMUS [None]
  - VISION BLURRED [None]
